FAERS Safety Report 23831025 (Version 1)
Quarter: 2024Q2

REPORT INFORMATION
  Report Type: Spontaneous
  Country: CA (occurrence: CA)
  Receive Date: 20240508
  Receipt Date: 20240508
  Transmission Date: 20240716
  Serious: Yes (Other)
  Sender: FDA-Public Use
  Company Number: CA-TEVA-VS-3195513

PATIENT
  Sex: Female

DRUGS (4)
  1. PROGESTERONE [Suspect]
     Active Substance: PROGESTERONE
     Indication: Supplementation therapy
     Route: 065
  2. ENDOMETRIN [Suspect]
     Active Substance: PROGESTERONE
     Indication: Supplementation therapy
     Dosage: TIME INTERVAL: 0.33333333 DAYS: VAGINAL TABLET, EFFERVESCENT
     Route: 067
  3. ENDOMETRIN [Suspect]
     Active Substance: PROGESTERONE
     Indication: Supplementation therapy
     Dosage: TIME INTERVAL: 0.33333333 DAYS: VAGINAL TABLET
     Route: 067
  4. ESCITALOPRAM OXALATE [Concomitant]
     Active Substance: ESCITALOPRAM OXALATE
     Indication: Anxiety disorder
     Route: 065

REACTIONS (3)
  - Pre-eclampsia [Recovered/Resolved]
  - Recalled product administered [Recovered/Resolved]
  - Off label use [Recovered/Resolved]
